FAERS Safety Report 26219003 (Version 1)
Quarter: 2025Q4

REPORT INFORMATION
  Report Type: Spontaneous
  Country: GB (occurrence: GB)
  Receive Date: 20251231
  Receipt Date: 20251231
  Transmission Date: 20260117
  Serious: Yes (Other)
  Sender: SANDOZ
  Company Number: None

PATIENT

DRUGS (1)
  1. AMOXICILLIN [Suspect]
     Active Substance: AMOXICILLIN
     Indication: Product used for unknown indication
     Dosage: 500 MG

REACTIONS (6)
  - Psychomotor hyperactivity [Unknown]
  - Confusional state [Unknown]
  - Exophthalmos [Unknown]
  - Oral discomfort [Unknown]
  - Headache [Unknown]
  - Pruritus [Unknown]
